FAERS Safety Report 18886560 (Version 1)
Quarter: 2021Q1

REPORT INFORMATION
  Report Type: Spontaneous
  Country: CN (occurrence: CN)
  Receive Date: 20210212
  Receipt Date: 20210212
  Transmission Date: 20210420
  Serious: Yes (Hospitalization, Other)
  Sender: FDA-Public Use
  Company Number: CN-ELI_LILLY_AND_COMPANY-CN202102002312

PATIENT
  Age: 85 Year
  Sex: Female

DRUGS (3)
  1. INSULIN GLARGINE [Concomitant]
     Active Substance: INSULIN GLARGINE
     Indication: BLOOD GLUCOSE INCREASED
  2. INSULIN LISPRO [Suspect]
     Active Substance: INSULIN LISPRO
     Indication: BLOOD GLUCOSE INCREASED
     Dosage: 8 INTERNATIONAL UNIT, TID
     Route: 065
  3. INSULIN LISPRO [Suspect]
     Active Substance: INSULIN LISPRO
     Dosage: 6 INTERNATIONAL UNIT, TID
     Route: 065
     Dates: end: 20210128

REACTIONS (13)
  - Left atrial enlargement [Recovering/Resolving]
  - Cardiac dysfunction [Recovering/Resolving]
  - Type 2 diabetes mellitus [Recovering/Resolving]
  - Diabetic retinopathy [Recovering/Resolving]
  - Glaucoma [Recovering/Resolving]
  - Arteriosclerosis [Recovering/Resolving]
  - Pneumonia [Recovering/Resolving]
  - Respiratory failure [Recovering/Resolving]
  - Coronary artery disease [Recovering/Resolving]
  - Sinus rhythm [Recovering/Resolving]
  - Hypertension [Recovering/Resolving]
  - Angina unstable [Recovering/Resolving]
  - Hypoglycaemia [Recovered/Resolved]

NARRATIVE: CASE EVENT DATE: 20210127
